FAERS Safety Report 5647032-3 (Version None)
Quarter: 2008Q1

REPORT INFORMATION
  Report Type: 
  Country: None (occurrence: None)
  Receive Date: 20080131
  Receipt Date: 20071119
  Transmission Date: 20080703
  Serious: Yes (Hospitalization)
  Sender: FDA-Public Use
  Company Number: 163-21880-07100815

PATIENT
  Age: 65 Year
  Sex: Female

DRUGS (2)
  1. REVLIMID [Suspect]
     Indication: MULTIPLE MYELOMA
     Dosage: 10 MG, 1 IN 1 D, ORAL
     Route: 048
     Dates: end: 20071116
  2. REVLIMID [Suspect]
     Dosage: 25 MG, DAILY, ORAL
     Route: 048
     Dates: start: 20071005, end: 20071011

REACTIONS (2)
  - BIPOLAR DISORDER [None]
  - THROMBOCYTOPENIA [None]
